FAERS Safety Report 25443363 (Version 1)
Quarter: 2025Q2

REPORT INFORMATION
  Report Type: Spontaneous
  Country: GB (occurrence: GB)
  Receive Date: 20250617
  Receipt Date: 20250617
  Transmission Date: 20250716
  Serious: Yes (Other)
  Sender: ESPERION THERAPEUTICS
  Company Number: None

PATIENT

DRUGS (1)
  1. BEMPEDOIC ACID\EZETIMIBE [Suspect]
     Active Substance: BEMPEDOIC ACID\EZETIMIBE
     Indication: Product used for unknown indication
     Dosage: 1 DOSAGE FORM, QD (ONE TO BE TAKEN ONCE DAILY, 180/10MG)
     Route: 065
     Dates: start: 20250306, end: 20250407

REACTIONS (4)
  - Myalgia [Unknown]
  - Abdominal distension [Recovering/Resolving]
  - Abdominal discomfort [Unknown]
  - Pain in extremity [Unknown]
